FAERS Safety Report 23629865 (Version 1)
Quarter: 2024Q1

REPORT INFORMATION
  Report Type: Report from Study
  Country: US (occurrence: US)
  Receive Date: 20240314
  Receipt Date: 20240314
  Transmission Date: 20240410
  Serious: Yes (Hospitalization)
  Sender: FDA-Public Use
  Company Number: US-JAZZ PHARMACEUTICALS-2022-US-032340

PATIENT
  Age: 25 Year
  Sex: Male

DRUGS (3)
  1. EPIDIOLEX [Suspect]
     Active Substance: CANNABIDIOL
     Indication: Lennox-Gastaut syndrome
     Dosage: 5.5 MILLILITER, BID
     Route: 048
     Dates: start: 201904
  2. EPIDIOLEX [Suspect]
     Active Substance: CANNABIDIOL
     Indication: Cerebral palsy
     Dosage: 6 MILLILITER, BID
     Route: 048
     Dates: start: 20220401
  3. EPIDIOLEX [Suspect]
     Active Substance: CANNABIDIOL
     Dosage: TAKE 5 ML BY MOUTH EVERY MORNING AND 5.5 ML EVERY EVENING
     Route: 048
     Dates: start: 201904

REACTIONS (3)
  - Hospitalisation [Unknown]
  - Seizure [Unknown]
  - Emergency care [Unknown]

NARRATIVE: CASE EVENT DATE: 20221009
